FAERS Safety Report 8911893 (Version 2)
Quarter: 2013Q1

REPORT INFORMATION
  Report Type: Spontaneous
  Country: AU (occurrence: AU)
  Receive Date: 20121115
  Receipt Date: 20130129
  Transmission Date: 20140127
  Serious: Yes (Other)
  Sender: FDA-Public Use
  Company Number: AU-GLAXOSMITHKLINE-B0844523A

PATIENT
  Sex: Female

DRUGS (4)
  1. AVAMYS [Suspect]
     Indication: SINUSITIS
     Route: 065
     Dates: start: 20121108, end: 20121108
  2. VENTOLIN [Concomitant]
     Route: 065
  3. FLIXOTIDE [Concomitant]
     Route: 065
  4. HERBAL MEDICINE [Concomitant]
     Route: 065

REACTIONS (5)
  - Abasia [Recovered/Resolved]
  - Dizziness [Recovered/Resolved]
  - Malaise [Recovered/Resolved]
  - Vomiting [Unknown]
  - Headache [Unknown]
